FAERS Safety Report 7012867-1 (Version None)
Quarter: 2010Q3

REPORT INFORMATION
  Report Type: 
  Country: None (occurrence: None)
  Receive Date: 20100924
  Receipt Date: 20100914
  Transmission Date: 20110219
  Serious: Yes (Other)
  Sender: FDA-Public Use
  Company Number: DE-B.I. PHARMACEUTICALS,INC./RIDGEFIELD-2010-DE-05082DE

PATIENT
  Age: 42 Year
  Sex: Female

DRUGS (3)
  1. VIRAMUNE [Suspect]
     Indication: HIV INFECTION
     Dosage: 400 MG
     Route: 048
     Dates: start: 19980416
  2. STAVUDINE [Concomitant]
     Indication: HIV INFECTION
     Dates: start: 19980416, end: 20030407
  3. LAMIVUDINE [Concomitant]
     Indication: HIV INFECTION
     Dates: start: 19980416, end: 20080919

REACTIONS (1)
  - ABORTION SPONTANEOUS [None]
